FAERS Safety Report 22223495 (Version 1)
Quarter: 2023Q2

REPORT INFORMATION
  Report Type: Spontaneous
  Country: US (occurrence: None)
  Receive Date: 20230417
  Receipt Date: 20230417
  Transmission Date: 20230721
  Serious: No
  Sender: FDA-Public Use
  Company Number: None

PATIENT
  Age: 75 Year
  Sex: Male
  Weight: 65.68 kg

DRUGS (28)
  1. ABIRATERONE ACETATE [Suspect]
     Active Substance: ABIRATERONE ACETATE
     Indication: Prostate cancer
     Dosage: FREQUENCY : DAILY;?
     Route: 048
  2. AMLODIPINE BESYLATE [Concomitant]
     Active Substance: AMLODIPINE BESYLATE
  3. ASPIRIN [Concomitant]
     Active Substance: ASPIRIN
  4. ATORVASTATIN CALICUM [Concomitant]
  5. BRIMONIDINE TARTRATE [Concomitant]
     Active Substance: BRIMONIDINE TARTRATE
  6. CALCIUM CARBONATE\VITAMIN D [Concomitant]
     Active Substance: CALCIUM CARBONATE\VITAMIN D
  7. DEXCOM G6 [Concomitant]
  8. VALIUM [Concomitant]
     Active Substance: DIAZEPAM
  9. COSOPT [Concomitant]
     Active Substance: DORZOLAMIDE HYDROCHLORIDE\TIMOLOL MALEATE
  10. ONETOUCH ULTRA LYUMJEV KWIKPEN [Concomitant]
  11. B-D ULTRAFINE [Concomitant]
  12. INSULIN PEN NEEDLE [Concomitant]
  13. LANTUS SOLOSTAR [Concomitant]
     Active Substance: INSULIN GLARGINE
  14. LURPON DEPOT-PED [Concomitant]
  15. NIACINAMIDE [Concomitant]
  16. OXYCODONE [Concomitant]
     Active Substance: OXYCODONE
  17. PRED FORTE [Concomitant]
     Active Substance: PREDNISOLONE ACETATE
  18. PREDNISONE [Concomitant]
     Active Substance: PREDNISONE
  19. DOCUSATE SODIUM\SENNOSIDES [Concomitant]
     Active Substance: DOCUSATE SODIUM\SENNOSIDES
  20. SIROLIMUS [Concomitant]
     Active Substance: SIROLIMUS
  21. FLOMAX [Concomitant]
     Active Substance: TAMSULOSIN HYDROCHLORIDE
  22. DIOVAN [Concomitant]
     Active Substance: VALSARTAN
  23. VITAMIN C [Concomitant]
     Active Substance: ASCORBIC ACID
  24. VITAMIN D [Concomitant]
     Active Substance: VITAMIN D NOS
  25. VITAMIN E [Concomitant]
     Active Substance: .ALPHA.-TOCOPHEROL
  26. AMBIEN [Concomitant]
     Active Substance: ZOLPIDEM TARTRATE
  27. DOXYCYCLINE HYCLATE [Concomitant]
     Active Substance: DOXYCYCLINE HYCLATE
  28. ENGERIX-B INJECTION [Concomitant]

REACTIONS (1)
  - Loss of therapeutic response [None]
